FAERS Safety Report 9234199 (Version 3)
Quarter: 2013Q2

REPORT INFORMATION
  Report Type: Report from Study
  Country: VN (occurrence: VN)
  Receive Date: 20130416
  Receipt Date: 20130625
  Transmission Date: 20140414
  Serious: Yes (Hospitalization)
  Sender: FDA-Public Use
  Company Number: VN-ASTRAZENECA-2013SE18274

PATIENT
  Age: 43 Year
  Sex: Female
  Weight: 40 kg

DRUGS (4)
  1. METHOTREXATE [Suspect]
     Indication: RHEUMATOID ARTHRITIS
     Route: 048
     Dates: start: 20120315
  2. OMEPRAZOLE [Suspect]
     Indication: GASTRITIS PROPHYLAXIS
     Route: 048
     Dates: start: 20130115
  3. METHYPREDNISOLONE [Suspect]
     Indication: INFLAMMATION
     Route: 048
     Dates: start: 20130115
  4. CALCITRIOL [Suspect]
     Indication: VITAMIN SUPPLEMENTATION
     Route: 048
     Dates: start: 20130115

REACTIONS (1)
  - Cataract [Recovered/Resolved]
